FAERS Safety Report 13954237 (Version 1)
Quarter: 2017Q3

REPORT INFORMATION
  Report Type: Spontaneous
  Country: US (occurrence: US)
  Receive Date: 20170911
  Receipt Date: 20170911
  Transmission Date: 20171128
  Serious: Yes (Hospitalization, Other)
  Sender: FDA-Public Use
  Company Number: US-AMGEN-USASP2017134584

PATIENT
  Age: 68 Year
  Sex: Female

DRUGS (5)
  1. BLINCYTO [Suspect]
     Active Substance: BLINATUMOMAB
     Dosage: 28 MCG, QD
     Route: 065
  2. BLINCYTO [Suspect]
     Active Substance: BLINATUMOMAB
     Dosage: 84 MCG, QD
     Route: 065
  3. BLINCYTO [Suspect]
     Active Substance: BLINATUMOMAB
     Dosage: 56 MCG, QD
     Route: 065
  4. BLINCYTO [Suspect]
     Active Substance: BLINATUMOMAB
     Indication: CHRONIC LYMPHOCYTIC LEUKAEMIA
     Dosage: 9 MCG, QD
     Route: 065
  5. BLINCYTO [Suspect]
     Active Substance: BLINATUMOMAB
     Dosage: 112 MCG, QD
     Route: 065

REACTIONS (3)
  - Off label use [Unknown]
  - Encephalopathy [Unknown]
  - Drug ineffective [Unknown]
